FAERS Safety Report 19934431 (Version 1)
Quarter: 2021Q4

REPORT INFORMATION
  Report Type: Spontaneous
  Country: US (occurrence: US)
  Receive Date: 20211008
  Receipt Date: 20211008
  Transmission Date: 20220303
  Serious: Yes (Other)
  Sender: FDA-Public Use
  Company Number: 2021A754824

PATIENT
  Age: 68 Year
  Sex: Male
  Weight: 90.7 kg

DRUGS (2)
  1. BRILINTA [Suspect]
     Active Substance: TICAGRELOR
     Indication: Stent placement
     Dosage: UNKNOWN
     Route: 048
     Dates: start: 2017, end: 2017
  2. BRILINTA [Suspect]
     Active Substance: TICAGRELOR
     Indication: Stent placement
     Dosage: 90.0MG UNKNOWN
     Route: 048
     Dates: start: 202109

REACTIONS (2)
  - Myocardial infarction [Unknown]
  - Dyspnoea [Recovering/Resolving]

NARRATIVE: CASE EVENT DATE: 20170101
